FAERS Safety Report 4404734-4 (Version None)
Quarter: 2004Q3

REPORT INFORMATION
  Report Type: 
  Country: None (occurrence: None)
  Receive Date: 20040722
  Receipt Date: 20040709
  Transmission Date: 20050211
  Serious: Yes (Death)
  Sender: FDA-Public Use
  Company Number: JP-GLAXOSMITHKLINE-B0338856A

PATIENT
  Age: 36 Year
  Sex: Male

DRUGS (5)
  1. MODACIN [Suspect]
     Indication: BACTERIAL INFECTION
     Dosage: 2G TWICE PER DAY
     Route: 042
     Dates: start: 20040427, end: 20040427
  2. MEROPEN [Suspect]
     Dosage: 2G PER DAY
     Route: 042
     Dates: start: 20040428, end: 20040506
  3. LASIX [Suspect]
     Route: 065
  4. ADONA (AC-17) [Concomitant]
     Route: 065
  5. TRANSAMIN [Concomitant]
     Route: 065

REACTIONS (1)
  - TOXIC EPIDERMAL NECROLYSIS [None]
